FAERS Safety Report 10076483 (Version 1)
Quarter: 2014Q2

REPORT INFORMATION
  Report Type: Spontaneous
  Country: US (occurrence: US)
  Receive Date: 20140414
  Receipt Date: 20140414
  Transmission Date: 20141212
  Serious: No
  Sender: FDA-Public Use
  Company Number: US-BAYER-2014-054323

PATIENT
  Age: 65 Year
  Sex: Female
  Weight: 104 kg

DRUGS (1)
  1. ALEVE CAPLET [Suspect]
     Indication: PAIN
     Dosage: UNK
     Dates: start: 201403

REACTIONS (1)
  - Drug ineffective [None]
